FAERS Safety Report 7406808-2 (Version None)
Quarter: 2011Q2

REPORT INFORMATION
  Report Type: 
  Country: None (occurrence: None)
  Receive Date: 20110406
  Receipt Date: 20110406
  Transmission Date: 20111010
  Serious: Yes (Hospitalization)
  Sender: FDA-Public Use
  Company Number: None

PATIENT
  Sex: Female
  Weight: 45.5 kg

DRUGS (3)
  1. CALCIUM CARBONATE [Suspect]
     Dosage: 3000 MG
  2. VITAMIN D [Suspect]
     Dosage: 2400 IU
  3. ZOMETA [Suspect]
     Dosage: 4 MG

REACTIONS (8)
  - ANAEMIA [None]
  - LUNG ADENOCARCINOMA STAGE IV [None]
  - PYREXIA [None]
  - ABDOMINAL PAIN [None]
  - PAIN [None]
  - NEOPLASM MALIGNANT [None]
  - NAUSEA [None]
  - ASCITES [None]
